FAERS Safety Report 7768202-4 (Version None)
Quarter: 2011Q3

REPORT INFORMATION
  Report Type: 
  Country: None (occurrence: None)
  Receive Date: 20110922
  Receipt Date: 20110922
  Transmission Date: 20111222
  Serious: Yes (Life-Threatening, Hospitalization, Disabling)
  Sender: FDA-Public Use
  Company Number: None

PATIENT
  Sex: Male
  Weight: 25 kg

DRUGS (1)
  1. DENOSUMAB [Suspect]
     Indication: OFF LABEL USE
     Dosage: SEE ADVERSE EVENT DESCRIPTION
     Route: 058
     Dates: start: 20101210, end: 20110526

REACTIONS (8)
  - IMPAIRED HEALING [None]
  - OFF LABEL USE [None]
  - BLOOD POTASSIUM DECREASED [None]
  - BLOOD UREA INCREASED [None]
  - BLOOD PARATHYROID HORMONE DECREASED [None]
  - FEMUR FRACTURE [None]
  - VOMITING [None]
  - HYPERCALCAEMIA [None]
